FAERS Safety Report 17351610 (Version 5)
Quarter: 2020Q1

REPORT INFORMATION
  Report Type: Report from Study
  Country: US (occurrence: US)
  Receive Date: 20200130
  Receipt Date: 20200326
  Transmission Date: 20200409
  Serious: Yes (Hospitalization, Other)
  Sender: FDA-Public Use
  Company Number: US-ACTELION-A-US2020-200988

PATIENT
  Age: 68 Year
  Sex: Female
  Weight: 53.52 kg

DRUGS (10)
  1. ORENITRAM [Suspect]
     Active Substance: TREPROSTINIL
     Dosage: 1.5 MG, TID
     Route: 048
     Dates: start: 20190410
  2. AMBRISENTAN [Suspect]
     Active Substance: AMBRISENTAN
     Indication: PULMONARY ARTERIAL HYPERTENSION
     Dosage: 10 MG, QD
     Route: 048
     Dates: start: 20161013
  3. ORENITRAM [Suspect]
     Active Substance: TREPROSTINIL
     Dosage: 1 MG, QD
     Route: 048
  4. TADALAFIL. [Suspect]
     Active Substance: TADALAFIL
     Indication: PULMONARY ARTERIAL HYPERTENSION
     Route: 065
  5. ORENITRAM [Suspect]
     Active Substance: TREPROSTINIL
     Dosage: 0.125 MG, BID
     Route: 048
     Dates: start: 20200318
  6. REMODULIN [Suspect]
     Active Substance: TREPROSTINIL
     Indication: PULMONARY ARTERIAL HYPERTENSION
     Dosage: 0.01 MG/KG
     Route: 058
     Dates: start: 20180910
  7. UPTRAVI [Suspect]
     Active Substance: SELEXIPAG
     Indication: PRODUCT USED FOR UNKNOWN INDICATION
     Dosage: UNK
     Route: 048
  8. ADCIRCA [Suspect]
     Active Substance: TADALAFIL
     Indication: PULMONARY ARTERIAL HYPERTENSION
     Route: 065
  9. ORENITRAM [Suspect]
     Active Substance: TREPROSTINIL
     Dosage: 1.5 MG, Q 8 HR
     Route: 048
  10. ORENITRAM [Suspect]
     Active Substance: TREPROSTINIL
     Indication: PULMONARY ARTERIAL HYPERTENSION
     Dosage: 0.5 MG, TID
     Route: 048
     Dates: start: 20190410

REACTIONS (27)
  - Retinal artery occlusion [Unknown]
  - Pain [Not Recovered/Not Resolved]
  - Insomnia [Unknown]
  - Bone pain [Unknown]
  - Dyspepsia [Unknown]
  - Paraesthesia [Unknown]
  - Decreased appetite [Unknown]
  - Constipation [Unknown]
  - Muscle enzyme increased [Unknown]
  - Asthenia [Not Recovered/Not Resolved]
  - Musculoskeletal pain [Unknown]
  - Myalgia [Unknown]
  - Arthritis [Unknown]
  - Colitis ulcerative [Recovered/Resolved]
  - Pain in jaw [Unknown]
  - Burning sensation [Not Recovered/Not Resolved]
  - Infusion site pain [Unknown]
  - Erythema [Recovered/Resolved]
  - Pain in extremity [Unknown]
  - Peripheral swelling [Unknown]
  - Flatulence [Unknown]
  - Cardiomegaly [Unknown]
  - Headache [Unknown]
  - Angiopathy [Unknown]
  - Nausea [Unknown]
  - Malaise [Recovered/Resolved]
  - Gait disturbance [Unknown]

NARRATIVE: CASE EVENT DATE: 2019
